FAERS Safety Report 16360268 (Version 3)
Quarter: 2019Q4

REPORT INFORMATION
  Report Type: Report from Study
  Country: US (occurrence: US)
  Receive Date: 20190528
  Receipt Date: 20191121
  Transmission Date: 20200122
  Serious: Yes (Other)
  Sender: FDA-Public Use
  Company Number: PHHY2018US007093

PATIENT
  Age: 30 Year
  Sex: Female

DRUGS (2)
  1. BUSPIRONE HYDROCHLORIDE. [Concomitant]
     Active Substance: BUSPIRONE HYDROCHLORIDE
     Indication: ANXIETY
     Dosage: UNK
     Route: 065
     Dates: start: 20170905, end: 20180709
  2. GILENYA [Suspect]
     Active Substance: FINGOLIMOD HYDROCHLORIDE
     Indication: MULTIPLE SCLEROSIS
     Dosage: UNK, QD
     Route: 048

REACTIONS (8)
  - Folliculitis [Unknown]
  - Melanocytic naevus [Unknown]
  - Insomnia [Unknown]
  - Lymphopenia [Unknown]
  - Hypothyroidism [Unknown]
  - Alanine aminotransferase increased [Unknown]
  - Haemangioma [Unknown]
  - Haemangioma of skin [Unknown]

NARRATIVE: CASE EVENT DATE: 20170905
